FAERS Safety Report 23290289 (Version 3)
Quarter: 2024Q1

REPORT INFORMATION
  Report Type: Spontaneous
  Country: DE (occurrence: DE)
  Receive Date: 20231213
  Receipt Date: 20240304
  Transmission Date: 20240410
  Serious: Yes (Other)
  Sender: FDA-Public Use
  Company Number: DE-002147023-NVSC2023DE259764

PATIENT
  Age: 48 Year
  Sex: Female
  Weight: 95 kg

DRUGS (2)
  1. AIMOVIG [Suspect]
     Active Substance: ERENUMAB-AOOE
     Indication: Migraine prophylaxis
     Dosage: 70 MILLIGRAM, QD
     Route: 030
     Dates: start: 20231203, end: 20231203
  2. LEVOTHYROXINE SODIUM [Concomitant]
     Active Substance: LEVOTHYROXINE SODIUM
     Indication: Autoimmune thyroiditis
     Dosage: 1 DOSAGE FORM, QD
     Route: 048
     Dates: start: 2022

REACTIONS (26)
  - Hypertensive crisis [Recovering/Resolving]
  - Sleep disorder [Not Recovered/Not Resolved]
  - Panic attack [Recovering/Resolving]
  - Nausea [Recovering/Resolving]
  - Dizziness [Recovering/Resolving]
  - Palpitations [Recovering/Resolving]
  - Hyperhidrosis [Unknown]
  - Feeling hot [Unknown]
  - Erythema [Unknown]
  - Restlessness [Unknown]
  - Agitation [Unknown]
  - Tremor [Unknown]
  - Tinnitus [Unknown]
  - Feeling cold [Unknown]
  - Head discomfort [Unknown]
  - Nausea [Unknown]
  - Dizziness [Unknown]
  - Palpitations [Not Recovered/Not Resolved]
  - Decreased appetite [Recovering/Resolving]
  - Caffeine allergy [Not Recovered/Not Resolved]
  - Food aversion [Recovered/Resolved]
  - Tachycardia [Recovered/Resolved]
  - Weight decreased [Not Recovered/Not Resolved]
  - Leukocytosis [Recovering/Resolving]
  - Electrocardiogram abnormal [Unknown]
  - Incorrect route of product administration [Recovered/Resolved]

NARRATIVE: CASE EVENT DATE: 20231201
